FAERS Safety Report 8781757 (Version 1)
Quarter: 2012Q4

REPORT INFORMATION
  Report Type: 
  Country: CN (occurrence: CN)
  Receive Date: 20120913
  Receipt Date: 20120913
  Transmission Date: 20130627
  Serious: Yes (Hospitalization)
  Sender: FDA-Public Use
  Company Number: CN-SANOFI-AVENTIS-2012SA064425

PATIENT
  Age: 78 Year
  Sex: Male
  Weight: 53 kg

DRUGS (3)
  1. PLAVIX [Suspect]
     Indication: ANTICOAGULANT THERAPY
     Route: 048
     Dates: start: 20100107, end: 20100412
  2. ASPIRIN [Concomitant]
  3. ATORVASTATIN [Concomitant]

REACTIONS (4)
  - Epilepsy [Recovering/Resolving]
  - Convulsion [Recovering/Resolving]
  - Altered state of consciousness [Recovering/Resolving]
  - Eye movement disorder [Recovering/Resolving]
